FAERS Safety Report 5943219-0 (Version None)
Quarter: 2008Q4

REPORT INFORMATION
  Report Type: 
  Country: None (occurrence: None)
  Receive Date: 20081106
  Receipt Date: 20081031
  Transmission Date: 20090506
  Serious: Yes (Other)
  Sender: FDA-Public Use
  Company Number: B0544891A

PATIENT
  Age: 34 Year
  Sex: Female

DRUGS (10)
  1. EPIVIR [Suspect]
     Indication: HIV INFECTION
     Route: 048
     Dates: start: 20050620
  2. ZIAGEN [Suspect]
     Indication: HIV INFECTION
     Route: 048
     Dates: start: 20050620, end: 20050822
  3. COMBIVIR [Suspect]
     Indication: HIV INFECTION
     Route: 065
     Dates: start: 20070823
  4. TELZIR [Suspect]
     Indication: HIV INFECTION
     Route: 065
     Dates: start: 20071025
  5. KALETRA [Suspect]
     Indication: HIV INFECTION
     Route: 048
     Dates: start: 20050620
  6. VIDEX [Suspect]
     Indication: HIV INFECTION
     Route: 048
     Dates: start: 20060103
  7. NORVIR [Suspect]
     Indication: HIV INFECTION
     Route: 048
     Dates: start: 20060810
  8. REYATAZ [Suspect]
     Indication: HIV INFECTION
     Route: 065
     Dates: start: 20060810
  9. INVIRASE [Suspect]
     Indication: HIV INFECTION
     Route: 065
     Dates: start: 20071129
  10. ZERIT [Concomitant]
     Indication: HIV INFECTION
     Route: 048
     Dates: start: 20050822

REACTIONS (3)
  - DRUG EXPOSURE DURING PREGNANCY [None]
  - DRUG RASH WITH EOSINOPHILIA AND SYSTEMIC SYMPTOMS [None]
  - GASTROINTESTINAL DISORDER [None]
